FAERS Safety Report 19980890 (Version 3)
Quarter: 2022Q2

REPORT INFORMATION
  Report Type: Spontaneous
  Country: IN (occurrence: IN)
  Receive Date: 20211021
  Receipt Date: 20220608
  Transmission Date: 20220720
  Serious: Yes (Other)
  Sender: FDA-Public Use
  Company Number: IN-PFIZER INC-2021666597

PATIENT
  Age: 77 Year
  Sex: Female

DRUGS (3)
  1. PALBOCICLIB [Suspect]
     Active Substance: PALBOCICLIB
     Indication: Breast cancer metastatic
     Dosage: FOR 21 DAYS IN A MONTH
     Dates: start: 202104
  2. PALBOCICLIB [Suspect]
     Active Substance: PALBOCICLIB
     Dosage: DAILY FOR 21 DAYS (OD)
     Route: 048
     Dates: start: 20210503
  3. FULVESTRANT [Concomitant]
     Active Substance: FULVESTRANT
     Dosage: 500 MG, MONTHLY
     Route: 030
     Dates: start: 202104

REACTIONS (6)
  - Nephrolithiasis [Unknown]
  - Neoplasm progression [Unknown]
  - Pain [Unknown]
  - Haemoglobin decreased [Unknown]
  - Mediastinal mass [Unknown]
  - Pulmonary mass [Unknown]

NARRATIVE: CASE EVENT DATE: 20210911
